FAERS Safety Report 16455289 (Version 1)
Quarter: 2019Q2

REPORT INFORMATION
  Report Type: Spontaneous
  Country: US (occurrence: US)
  Receive Date: 20190619
  Receipt Date: 20190619
  Transmission Date: 20190711
  Serious: No
  Sender: FDA-Public Use
  Company Number: US-ROCHE-2126279

PATIENT
  Sex: Female

DRUGS (8)
  1. CELEBREX [Concomitant]
     Active Substance: CELECOXIB
     Route: 065
  2. PANTOPRAZOLE SODIUM. [Concomitant]
     Active Substance: PANTOPRAZOLE SODIUM
  3. BACLOFEN. [Concomitant]
     Active Substance: BACLOFEN
     Route: 065
  4. CIPRO [Concomitant]
     Active Substance: CIPROFLOXACIN HYDROCHLORIDE
     Route: 065
  5. HYDROXYCHLOROQUINE SULFATE. [Concomitant]
     Active Substance: HYDROXYCHLOROQUINE SULFATE
  6. AFLURIA [INFLUENZA VACCINE] [Concomitant]
     Route: 065
     Dates: start: 2016, end: 2017
  7. ACTEMRA [Suspect]
     Active Substance: TOCILIZUMAB
     Indication: RHEUMATOID ARTHRITIS
     Route: 058
  8. METHYLPRED [Concomitant]
     Active Substance: METHYLPREDNISOLONE
     Route: 065

REACTIONS (2)
  - Alopecia [Not Recovered/Not Resolved]
  - Hair texture abnormal [Not Recovered/Not Resolved]
